FAERS Safety Report 4283106-X (Version None)
Quarter: 2004Q1

REPORT INFORMATION
  Report Type: 
  Country: None (occurrence: None)
  Receive Date: 20040129
  Receipt Date: 20040112
  Transmission Date: 20041129
  Serious: Yes (Hospitalization)
  Sender: FDA-Public Use
  Company Number: 234564K03USA

PATIENT
  Age: 53 Year
  Sex: Male

DRUGS (3)
  1. REBIF [Suspect]
     Indication: MULTIPLE SCLEROSIS
     Dates: start: 20030603, end: 20031201
  2. AZATHIOPRINE [Concomitant]
  3. ZONISAMIDE [Concomitant]

REACTIONS (5)
  - BLOOD POTASSIUM DECREASED [None]
  - CENTRAL LINE INFECTION [None]
  - PANCYTOPENIA [None]
  - SEPSIS [None]
  - STAPHYLOCOCCAL INFECTION [None]
